FAERS Safety Report 15043046 (Version 1)
Quarter: 2018Q2

REPORT INFORMATION
  Report Type: Report from Study
  Country: None (occurrence: BE)
  Receive Date: 20180621
  Receipt Date: 20180621
  Transmission Date: 20180711
  Serious: Yes (Hospitalization)
  Sender: FDA-Public Use
  Company Number: BE-ABBVIE-18K-013-2390229-00

PATIENT
  Sex: Male

DRUGS (2)
  1. DUODOPA [Suspect]
     Active Substance: CARBIDOPA\LEVODOPA
     Indication: PARKINSON^S DISEASE
     Dosage: MD=4.5ML?CD=2.5ML/HR DURING 16HRS ?ED=1.5ML?ND=1ML/HR DURING 8HRS
     Route: 050
     Dates: start: 20180608, end: 20180615
  2. DUODOPA [Suspect]
     Active Substance: CARBIDOPA\LEVODOPA
     Dosage: MD=3ML?CD=3.2ML/HR DURING 16HRS ?ED=1.5ML?ND=1.5ML/HR DURING 8HRS
     Route: 050
     Dates: start: 20180615

REACTIONS (3)
  - Haemorrhoids [Unknown]
  - Stoma site pain [Unknown]
  - Cough [Unknown]
